FAERS Safety Report 17199434 (Version 1)
Quarter: 2019Q4

REPORT INFORMATION
  Report Type: Report from Study
  Country: None (occurrence: US)
  Receive Date: 20191226
  Receipt Date: 20191226
  Transmission Date: 20200122
  Serious: Yes (Other)
  Sender: FDA-Public Use
  Company Number: US-ABBVIE-19K-163-3163898-00

PATIENT
  Sex: Male

DRUGS (1)
  1. IMBRUVICA [Suspect]
     Active Substance: IBRUTINIB
     Indication: CHRONIC LYMPHOCYTIC LEUKAEMIA
     Dosage: 420 MG, QD
     Route: 048
     Dates: start: 20190906

REACTIONS (13)
  - Hepatic cirrhosis [Unknown]
  - Asthenia [Unknown]
  - Contusion [Unknown]
  - Diarrhoea [Not Recovered/Not Resolved]
  - Parkinson^s disease [Unknown]
  - Dementia [Unknown]
  - Fall [Unknown]
  - Joint injury [Unknown]
  - Somnolence [Unknown]
  - Arthralgia [Unknown]
  - Diabetes mellitus [Unknown]
  - Laboratory test abnormal [Recovering/Resolving]
  - Muscular weakness [Unknown]
